FAERS Safety Report 21234115 (Version 1)
Quarter: 2022Q3

REPORT INFORMATION
  Report Type: Spontaneous
  Country: KR (occurrence: None)
  Receive Date: 20220819
  Receipt Date: 20220819
  Transmission Date: 20221027
  Serious: Yes (Other)
  Sender: FDA-Public Use
  Company Number: 2022A288584

PATIENT
  Age: 50 Year
  Sex: Female

DRUGS (1)
  1. OSIMERTINIB [Suspect]
     Active Substance: OSIMERTINIB
     Route: 048
     Dates: start: 201912

REACTIONS (5)
  - Malignant neoplasm progression [Unknown]
  - Metastases to lymph nodes [Unknown]
  - Metastases to central nervous system [Unknown]
  - Dyspnoea [Unknown]
  - PO2 decreased [Unknown]

NARRATIVE: CASE EVENT DATE: 20190101
